FAERS Safety Report 15740465 (Version 1)
Quarter: 2018Q4

REPORT INFORMATION
  Report Type: Spontaneous
  Country: FR (occurrence: FR)
  Receive Date: 20181219
  Receipt Date: 20181219
  Transmission Date: 20190205
  Serious: Yes (Other)
  Sender: FDA-Public Use
  Company Number: FR-PFIZER INC-2018513720

PATIENT
  Age: 49 Year
  Sex: Female

DRUGS (10)
  1. NOXAFIL [Suspect]
     Active Substance: POSACONAZOLE
     Dosage: 300 MG, 1X/DAY
     Route: 048
     Dates: start: 20180924, end: 20180927
  2. TARGOCID [Concomitant]
     Active Substance: TEICOPLANIN
     Dosage: 1 DF, UNK
     Dates: start: 20181016
  3. NEFOPAM HYDROCHLORIDE [Concomitant]
     Active Substance: NEFOPAM HYDROCHLORIDE
     Indication: PAIN
     Dosage: 120 MG, 1X/DAY
     Dates: start: 201802
  4. TRAMADOL. [Concomitant]
     Active Substance: TRAMADOL
     Indication: PAIN
     Dosage: 500 MG, UNK
     Route: 048
     Dates: start: 20181015
  5. ONDANSETRON [Concomitant]
     Active Substance: ONDANSETRON
     Indication: NAUSEA
     Dosage: 8 MG, UNK
     Route: 042
     Dates: start: 20181001
  6. CASPOFUNGIN [Suspect]
     Active Substance: CASPOFUNGIN
     Indication: FUNGAL INFECTION
     Dosage: UNK
     Dates: start: 20180927, end: 20180929
  7. DAUNORUBICINE [Suspect]
     Active Substance: DAUNORUBICIN
     Indication: NEOPLASM MALIGNANT
     Dosage: 147.5 MG, 1X/DAY
     Route: 042
     Dates: start: 20180925, end: 20181002
  8. POLARAMINE [Suspect]
     Active Substance: DEXCHLORPHENIRAMINE MALEATE
     Indication: PREMEDICATION
     Dosage: 5 MG, 1X/DAY
     Route: 042
     Dates: start: 20180929, end: 20181008
  9. CYTARABINE. [Suspect]
     Active Substance: CYTARABINE
     Indication: NEOPLASM MALIGNANT
     Dosage: 330 MG, 1X/DAY
     Route: 042
     Dates: start: 20180925, end: 20181002
  10. IMIPENEMUM ANHYDRICUM [Concomitant]
     Indication: ANTIBIOTIC THERAPY
     Dosage: 1500 MG, 1X/DAY
     Dates: start: 20181004

REACTIONS (1)
  - Inappropriate antidiuretic hormone secretion [Recovered/Resolved]

NARRATIVE: CASE EVENT DATE: 20181017
